FAERS Safety Report 9987907 (Version 1)
Quarter: 2014Q1

REPORT INFORMATION
  Report Type: Spontaneous
  Country: GB (occurrence: GB)
  Receive Date: 20140307
  Receipt Date: 20140307
  Transmission Date: 20141002
  Serious: Yes (Other)
  Sender: FDA-Public Use
  Company Number: PHHY2014GB026616

PATIENT
  Age: 22 Year
  Sex: Female

DRUGS (7)
  1. MORPHINE SULFATE [Suspect]
     Indication: PAIN
     Dosage: 20 MG,BD
  2. MORPHINE SULFATE [Suspect]
     Dosage: 250 MG, QD
     Route: 040
  3. MORPHINE SULFATE [Suspect]
     Dosage: 10 MG/H, UNK
     Route: 040
  4. KETAMINE [Suspect]
     Indication: ANALGESIC THERAPY
     Route: 041
  5. CLONIDINE [Suspect]
     Indication: ANALGESIC THERAPY
  6. OXYNORM [Suspect]
     Indication: PAIN
     Dosage: 50 MG, 2 TO 4 HOURLY
  7. ANAESTHETICS [Suspect]

REACTIONS (2)
  - Drug dependence [Unknown]
  - Maternal exposure during pregnancy [Unknown]
